FAERS Safety Report 9999362 (Version 1)
Quarter: 2014Q1

REPORT INFORMATION
  Report Type: Spontaneous
  Country: FR (occurrence: FR)
  Receive Date: 20140312
  Receipt Date: 20140312
  Transmission Date: 20141002
  Serious: Yes (Hospitalization)
  Sender: FDA-Public Use
  Company Number: FR-ROCHE-1360850

PATIENT
  Age: 81 Year
  Sex: Female

DRUGS (13)
  1. AVASTIN [Suspect]
     Indication: OVARIAN CANCER
     Route: 042
     Dates: start: 20140113
  2. FUCIDINE [Suspect]
     Indication: IMPETIGO
     Route: 003
     Dates: start: 20140121, end: 20140121
  3. PERIDYS [Suspect]
     Indication: PRODUCT USED FOR UNKNOWN INDICATION
     Route: 048
     Dates: start: 20140121, end: 20140124
  4. SPASFON (FRANCE) [Suspect]
     Indication: PRODUCT USED FOR UNKNOWN INDICATION
     Route: 048
     Dates: start: 20140121, end: 20140124
  5. CARDENSIEL [Suspect]
     Indication: PRODUCT USED FOR UNKNOWN INDICATION
     Route: 048
     Dates: end: 20140124
  6. ZOPICLONE [Suspect]
     Indication: PRODUCT USED FOR UNKNOWN INDICATION
     Route: 048
     Dates: end: 20140124
  7. TIORFAN [Concomitant]
  8. DELURSAN [Concomitant]
  9. FUROSEMIDE [Concomitant]
  10. PERINDOPRIL [Concomitant]
  11. DIGOXINE [Concomitant]
  12. ESOMEPRAZOLE [Concomitant]
  13. TRAMADOL HYDROCHLORIDE [Concomitant]

REACTIONS (2)
  - Urticaria [Recovered/Resolved]
  - Toxic epidermal necrolysis [Recovering/Resolving]
